FAERS Safety Report 5593829-8 (Version None)
Quarter: 2008Q1

REPORT INFORMATION
  Report Type: 
  Country: None (occurrence: None)
  Receive Date: 20080116
  Receipt Date: 20080108
  Transmission Date: 20080703
  Serious: Yes (Other)
  Sender: FDA-Public Use
  Company Number: FR-BOEHRINGER INGELHEIM PHARMACEUTICALS, INC.-2007-FF-00477FF

PATIENT
  Age: 49 Year
  Sex: Male
  Weight: 63 kg

DRUGS (4)
  1. APTIVUS [Suspect]
     Indication: HIV INFECTION
     Dosage: TPV/RTV 500/200MG B.I.D
     Route: 048
     Dates: start: 20060509, end: 20061206
  2. APTIVUS [Suspect]
     Dosage: TPV/RTV 500/100MG B.I.D
     Route: 048
     Dates: start: 20061206, end: 20070122
  3. FUZEON [Concomitant]
     Indication: HIV INFECTION
     Route: 058
     Dates: end: 20070122
  4. TELZIR [Concomitant]
     Indication: HIV INFECTION
     Route: 048
     Dates: start: 20060509, end: 20070122

REACTIONS (4)
  - ALANINE AMINOTRANSFERASE INCREASED [None]
  - ASPARTATE AMINOTRANSFERASE INCREASED [None]
  - HEPATOCELLULAR INJURY [None]
  - OVERDOSE [None]
